FAERS Safety Report 12777116 (Version 1)
Quarter: 2016Q3

REPORT INFORMATION
  Report Type: Report from Study
  Country: DE (occurrence: DE)
  Receive Date: 20160924
  Receipt Date: 20160924
  Transmission Date: 20161109
  Serious: Yes (Hospitalization)
  Sender: FDA-Public Use
  Company Number: US-ASTRAZENECA-2016SF01622

PATIENT
  Age: 12 Month
  Sex: Male
  Weight: .6 kg

DRUGS (6)
  1. SYNAGIS [Suspect]
     Active Substance: PALIVIZUMAB
     Indication: PREMATURE BABY
     Dosage: 100.0MG UNKNOWN
     Route: 030
     Dates: start: 20101013, end: 20101013
  2. SYNAGIS [Suspect]
     Active Substance: PALIVIZUMAB
     Indication: PREMATURE BABY
     Dosage: 100.0MG UNKNOWN
     Route: 030
     Dates: start: 20101208, end: 20101208
  3. SYNAGIS [Suspect]
     Active Substance: PALIVIZUMAB
     Indication: PREMATURE BABY
     Dosage: 130.0MG UNKNOWN
     Route: 030
     Dates: start: 20110214, end: 20110214
  4. SYNAGIS [Suspect]
     Active Substance: PALIVIZUMAB
     Indication: PREMATURE BABY
     Dosage: 130.0MG UNKNOWN
     Route: 030
     Dates: start: 20110304, end: 20110304
  5. SYNAGIS [Suspect]
     Active Substance: PALIVIZUMAB
     Indication: PREMATURE BABY
     Dosage: 100.0MG UNKNOWN
     Route: 030
     Dates: start: 20101111, end: 20101111
  6. SYNAGIS [Suspect]
     Active Substance: PALIVIZUMAB
     Indication: PREMATURE BABY
     Dosage: 100.0MG UNKNOWN
     Route: 030
     Dates: start: 20110105, end: 20110105

REACTIONS (2)
  - Bronchitis [Recovered/Resolved]
  - Inappropriate schedule of drug administration [Recovered/Resolved]

NARRATIVE: CASE EVENT DATE: 201102
